FAERS Safety Report 6897383-X (Version None)
Quarter: 2010Q3

REPORT INFORMATION
  Report Type: 
  Country: None (occurrence: None)
  Receive Date: 20100802
  Receipt Date: 20070523
  Transmission Date: 20110219
  Serious: No
  Sender: FDA-Public Use
  Company Number: US-PFIZER INC-2007042205

PATIENT
  Sex: Female
  Weight: 68.181 kg

DRUGS (13)
  1. LYRICA [Suspect]
     Indication: SURGERY
     Dates: start: 20070118
  2. LYRICA [Suspect]
     Indication: NEOPLASM
  3. OBETROL [Concomitant]
  4. REGLAN [Concomitant]
  5. ALL OTHER THERAPEUTIC PRODUCTS [Concomitant]
  6. NEXIUM [Concomitant]
  7. MIRALAX [Concomitant]
  8. IMITREX [Concomitant]
  9. ZOLOFT [Concomitant]
  10. XANAX [Concomitant]
  11. DILAUDID [Concomitant]
  12. FOLIC ACID [Concomitant]
  13. IRON [Concomitant]

REACTIONS (5)
  - ARTHRALGIA [None]
  - ASTHENIA [None]
  - ATTENTION DEFICIT/HYPERACTIVITY DISORDER [None]
  - BLOOD IRON DECREASED [None]
  - PYREXIA [None]
